FAERS Safety Report 5057069-3 (Version None)
Quarter: 2006Q2

REPORT INFORMATION
  Report Type: 
  Country: None (occurrence: None)
  Receive Date: 20060622
  Receipt Date: 20060418
  Transmission Date: 20061013
  Serious: Yes (Hospitalization)
  Sender: FDA-Public Use
  Company Number: US-JNJFOC-20060404935

PATIENT
  Age: 44 Year
  Sex: Female
  Weight: 88.905 kg

DRUGS (2)
  1. DURAGESIC-100 [Suspect]
     Indication: PAIN
     Dosage: 200 UG/HR, 1 IN 72 HOUR, TRANSDERMAL
     Route: 062
     Dates: start: 20020101
  2. ACTIQ [Concomitant]

REACTIONS (2)
  - DYSPNOEA [None]
  - MUSCLE SPASMS [None]
